FAERS Safety Report 18366567 (Version 2)
Quarter: 2020Q4

REPORT INFORMATION
  Report Type: Spontaneous
  Country: CR (occurrence: CR)
  Receive Date: 20201009
  Receipt Date: 20201016
  Transmission Date: 20210114
  Serious: Yes (Death, Other)
  Sender: FDA-Public Use
  Company Number: NVSC2020CR272712

PATIENT
  Sex: Male

DRUGS (2)
  1. INTERFERON [Concomitant]
     Active Substance: INTERFERON
     Indication: PRODUCT USED FOR UNKNOWN INDICATION
     Dosage: EVERY 8 DAYS
     Route: 065
  2. ZOMETA [Suspect]
     Active Substance: ZOLEDRONIC ACID
     Indication: PRODUCT USED FOR UNKNOWN INDICATION
     Dosage: UNK
     Route: 065
     Dates: start: 202008

REACTIONS (13)
  - Sinusitis [Unknown]
  - Eating disorder [Unknown]
  - Dysphagia [Unknown]
  - Metastases to lung [Unknown]
  - Osteonecrosis of jaw [Unknown]
  - Infarction [Fatal]
  - Rib fracture [Unknown]
  - Nausea [Unknown]
  - Intervertebral disc compression [Unknown]
  - Asthenia [Unknown]
  - Dehydration [Unknown]
  - Malaise [Unknown]
  - Oral cavity fistula [Unknown]

NARRATIVE: CASE EVENT DATE: 20200826
